FAERS Safety Report 7427204-8 (Version None)
Quarter: 2011Q2

REPORT INFORMATION
  Report Type: 
  Country: None (occurrence: None)
  Receive Date: 20110420
  Receipt Date: 20110418
  Transmission Date: 20111010
  Serious: Yes (Other)
  Sender: FDA-Public Use
  Company Number: US-PFIZER INC-2009212058

PATIENT
  Sex: Female
  Weight: 101 kg

DRUGS (5)
  1. LIPITOR [Suspect]
     Indication: BLOOD CHOLESTEROL INCREASED
     Dates: start: 20090101, end: 20090503
  2. LIPITOR [Suspect]
     Dosage: 10 MG, 1X/DAY
     Route: 048
     Dates: start: 20100101
  3. HYDROCHLOROTHIAZIDE [Concomitant]
     Indication: HYPERTENSION
     Dosage: 25 MG, UNK
     Route: 048
  4. ACETYLSALICYLIC ACID [Concomitant]
     Dosage: 81 MG, 2X/DAY
     Route: 048
  5. VALSARTAN [Concomitant]
     Indication: HYPERTENSION
     Dosage: 320 MG, UNK
     Route: 048

REACTIONS (7)
  - MUSCULOSKELETAL STIFFNESS [None]
  - HEADACHE [None]
  - HYPERTENSION [None]
  - EAR DISORDER [None]
  - PAIN IN EXTREMITY [None]
  - DYSPHAGIA [None]
  - BLOOD CHOLESTEROL INCREASED [None]
